FAERS Safety Report 7460431-2 (Version None)
Quarter: 2011Q2

REPORT INFORMATION
  Report Type: 
  Country: None (occurrence: None)
  Receive Date: 20110505
  Receipt Date: 20110427
  Transmission Date: 20111010
  Serious: Yes (Life-Threatening)
  Sender: FDA-Public Use
  Company Number: B0716148A

PATIENT
  Sex: Female
  Weight: 7.3 kg

DRUGS (7)
  1. ZOVIRAX [Concomitant]
     Dosage: 250MG PER DAY
     Route: 042
     Dates: start: 20021109, end: 20021128
  2. ALKERAN [Suspect]
     Indication: STEM CELL TRANSPLANT
     Dosage: 90MGM2 PER DAY
     Route: 042
     Dates: start: 20021109, end: 20021110
  3. VEPESID [Concomitant]
     Indication: STEM CELL TRANSPLANT
     Dosage: 200MGM2 PER DAY
     Route: 042
     Dates: start: 20021105, end: 20021108
  4. FLUMARIN [Concomitant]
     Dosage: 1.5G PER DAY
     Route: 042
     Dates: start: 20021109, end: 20021121
  5. CARBOPLATIN [Concomitant]
     Indication: STEM CELL TRANSPLANT
     Dosage: 400MGM2 PER DAY
     Route: 042
     Dates: start: 20021105, end: 20021108
  6. MEYLON [Concomitant]
     Dosage: 12.5ML PER DAY
     Route: 042
     Dates: start: 20021110, end: 20021116
  7. GASTER [Concomitant]
     Dosage: 5MG PER DAY
     Route: 042
     Dates: start: 20021110, end: 20021110

REACTIONS (1)
  - CARDIAC FAILURE [None]
